FAERS Safety Report 21269305 (Version 1)
Quarter: 2022Q3

REPORT INFORMATION
  Report Type: Spontaneous
  Country: DE (occurrence: DE)
  Receive Date: 20220830
  Receipt Date: 20220830
  Transmission Date: 20221027
  Serious: Yes (Other)
  Sender: FDA-Public Use
  Company Number: DE-002147023-NVSC2022DE143077

PATIENT
  Sex: Male

DRUGS (3)
  1. XOLAIR [Suspect]
     Active Substance: OMALIZUMAB
     Indication: Asthma
     Dosage: UNK
     Route: 065
     Dates: start: 20140116
  2. SYMBICORT [Suspect]
     Active Substance: BUDESONIDE\FORMOTEROL FUMARATE DIHYDRATE
     Indication: Asthma
     Dosage: UNK (CONCENTRATION:320/9)
     Route: 065
     Dates: start: 20131205, end: 20220617
  3. BEROTEC [Suspect]
     Active Substance: FENOTEROL HYDROBROMIDE
     Indication: Asthma
     Dosage: UNK (CONCENTRATION: 100)
     Route: 065
     Dates: start: 20131024, end: 20220617

REACTIONS (2)
  - Cardiac failure chronic [Not Recovered/Not Resolved]
  - Asthma [Recovering/Resolving]

NARRATIVE: CASE EVENT DATE: 20150101
